FAERS Safety Report 24923146 (Version 1)
Quarter: 2025Q1

REPORT INFORMATION
  Report Type: Spontaneous
  Country: CN (occurrence: US)
  Receive Date: 20250204
  Receipt Date: 20250204
  Transmission Date: 20250409
  Serious: Yes (Other)
  Sender: ALEXION PHARMACEUTICALS
  Company Number: CN-ASTRAZENECA-202410CHN008679CN

PATIENT
  Age: 81 Year
  Weight: 42 kg

DRUGS (5)
  1. PULMICORT RESPULES [Suspect]
     Active Substance: BUDESONIDE
     Indication: Pneumonia
     Dosage: 2 MILLIGRAM, BID
  2. IPRATROPIUM BROMIDE [Suspect]
     Active Substance: IPRATROPIUM BROMIDE
     Indication: Pneumonia
     Dosage: 0.5 MILLIGRAM, BID
  3. ALBUTEROL SULFATE [Suspect]
     Active Substance: ALBUTEROL SULFATE
     Indication: Pneumonia
     Dosage: 1.25 MILLILITER, BID
  4. DOXOFYLLINE [Suspect]
     Active Substance: DOXOFYLLINE
     Indication: Pneumonia
     Dosage: 0.2 GRAM, QD
  5. SODIUM CHLORIDE [Concomitant]
     Active Substance: SODIUM CHLORIDE
     Dosage: 100 UNK, QD

REACTIONS (1)
  - Tremor [Recovered/Resolved]
